FAERS Safety Report 11054124 (Version 1)
Quarter: 2015Q2

REPORT INFORMATION
  Report Type: Spontaneous
  Country: FR (occurrence: FR)
  Receive Date: 20150422
  Receipt Date: 20150422
  Transmission Date: 20150821
  Serious: Yes (Death, Hospitalization, Other)
  Sender: FDA-Public Use
  Company Number: FR-PAR PHARMACEUTICAL, INC-2015SCPR010505

PATIENT

DRUGS (2)
  1. TRAMADOL [Suspect]
     Active Substance: TRAMADOL
     Indication: PRODUCT USED FOR UNKNOWN INDICATION
     Dosage: UNK UNK, UNKNOWN
     Route: 065
  2. COCAINE [Interacting]
     Active Substance: COCAINE
     Indication: SUBSTANCE USE
     Dosage: UNK UNK, UNKNOWN
     Route: 065

REACTIONS (14)
  - Cardio-respiratory arrest [Unknown]
  - Potentiating drug interaction [Unknown]
  - Haemodynamic instability [Unknown]
  - Acidosis [Unknown]
  - Rhabdomyolysis [Unknown]
  - Generalised tonic-clonic seizure [Unknown]
  - Death [Fatal]
  - Serotonin syndrome [Unknown]
  - Toxicity to various agents [Fatal]
  - Acute kidney injury [Unknown]
  - Hypokalaemia [Unknown]
  - Overdose [Fatal]
  - Conduction disorder [Unknown]
  - Adrenergic syndrome [Unknown]
